FAERS Safety Report 7218100-X (Version None)
Quarter: 2011Q1

REPORT INFORMATION
  Report Type: 
  Country: None (occurrence: None)
  Receive Date: 20110110
  Receipt Date: 20110104
  Transmission Date: 20110831
  Serious: Yes (Hospitalization)
  Sender: FDA-Public Use
  Company Number: FR-MERCK-1101FRA00008

PATIENT
  Age: 53 Year
  Sex: Female

DRUGS (12)
  1. NOREPINEPHRINE [Concomitant]
     Route: 065
  2. HYDROCORTISONE HEMISUCCINATE [Concomitant]
     Route: 065
  3. FUROSEMIDE [Concomitant]
     Route: 065
  4. AMIKACIN SULFATE [Suspect]
     Route: 065
     Dates: start: 20101126, end: 20101129
  5. SUFENTANIL CITRATE [Concomitant]
     Route: 065
  6. CIPROFLOXACIN HYDROCHLORIDE [Suspect]
     Route: 042
     Dates: start: 20101127, end: 20101205
  7. MIDAZOLAM [Concomitant]
     Route: 065
  8. CLAVULANATE POTASSIUM AND TICARCILLIN DISODIUM [Concomitant]
     Route: 042
     Dates: start: 20101207, end: 20101209
  9. PRIMAXIN [Suspect]
     Route: 042
     Dates: start: 20101205, end: 20101207
  10. ENOXAPARIN SODIUM [Concomitant]
     Route: 065
  11. PIPERACILLIN SODIUM AND TAZOBACTAM SODIUM [Suspect]
     Route: 042
     Dates: start: 20101126, end: 20101205
  12. CIPROFLOXACIN HYDROCHLORIDE [Suspect]
     Route: 065
     Dates: start: 20101207, end: 20101209

REACTIONS (3)
  - ERYTHEMA [None]
  - DERMATITIS BULLOUS [None]
  - RASH MACULO-PAPULAR [None]
